FAERS Safety Report 8623909-1 (Version None)
Quarter: 2012Q3

REPORT INFORMATION
  Report Type: 
  Country: None (occurrence: None)
  Receive Date: 20120827
  Receipt Date: 20120820
  Transmission Date: 20120928
  Serious: Yes (Other)
  Sender: FDA-Public Use
  Company Number: PHHY2012DE067251

PATIENT
  Sex: Female
  Weight: 68 kg

DRUGS (4)
  1. GILENYA [Suspect]
     Indication: MULTIPLE SCLEROSIS
     Dosage: 0.5 MG, QD
     Route: 048
  2. BETA BLOCKING AGENTS [Concomitant]
     Dosage: UNK UKN, UNK
  3. FAMPYRA [Concomitant]
     Indication: MULTIPLE SCLEROSIS
     Dosage: 10 MG, BID
     Route: 048
     Dates: start: 20120701, end: 20120801
  4. ANTIDEPRESSANTS [Concomitant]
     Dosage: UNK UKN, UNK

REACTIONS (5)
  - CORONARY ARTERY DISEASE [None]
  - ELECTROCARDIOGRAM T WAVE AMPLITUDE DECREASED [None]
  - HAEMOGLOBIN INCREASED [None]
  - HEART RATE DECREASED [None]
  - ELECTROCARDIOGRAM ST SEGMENT DEPRESSION [None]
